FAERS Safety Report 4906470-4 (Version None)
Quarter: 2006Q1

REPORT INFORMATION
  Report Type: 
  Country: None (occurrence: None)
  Receive Date: 20060209
  Receipt Date: 20060202
  Transmission Date: 20060701
  Serious: Yes (Other)
  Sender: FDA-Public Use
  Company Number: US-MERCK-0602USA01309M

PATIENT
  Age: 28 Year
  Sex: Female

DRUGS (2)
  1. INVANZ [Suspect]
     Indication: SERRATIA INFECTION
     Route: 042
  2. CEFTRIAXONE SODIUM [Concomitant]
     Indication: SERRATIA INFECTION
     Route: 042

REACTIONS (3)
  - DRUG EXPOSURE DURING PREGNANCY [None]
  - SERRATIA INFECTION [None]
  - THERAPY NON-RESPONDER [None]
